FAERS Safety Report 6097254-5 (Version None)
Quarter: 2009Q1

REPORT INFORMATION
  Report Type: 
  Country: None (occurrence: None)
  Receive Date: 20090227
  Receipt Date: 20090226
  Transmission Date: 20090719
  Serious: Yes (Other)
  Sender: FDA-Public Use
  Company Number: D0060649A

PATIENT
  Age: 29 Year
  Sex: Male
  Weight: 90 kg

DRUGS (2)
  1. LAMICTAL [Suspect]
     Dosage: 200MG SEE DOSAGE TEXT
     Route: 048
     Dates: start: 20090225, end: 20090225
  2. ALCOHOL [Suspect]
     Route: 048
     Dates: start: 20090225, end: 20090225

REACTIONS (6)
  - COMA [None]
  - ENDOTRACHEAL INTUBATION [None]
  - INTENTIONAL OVERDOSE [None]
  - MUSCLE SPASMS [None]
  - SUICIDE ATTEMPT [None]
  - TACHYCARDIA [None]
